FAERS Safety Report 23109549 (Version 1)
Quarter: 2023Q4

REPORT INFORMATION
  Report Type: Report from Study
  Country: DE (occurrence: DE)
  Receive Date: 20231026
  Receipt Date: 20231026
  Transmission Date: 20240109
  Serious: Yes (Other)
  Sender: FDA-Public Use
  Company Number: DE-002147023-PHHY2018DE083095

PATIENT
  Sex: Female
  Weight: 72 kg

DRUGS (5)
  1. LETROZOLE [Suspect]
     Active Substance: LETROZOLE
     Indication: Breast cancer metastatic
     Dosage: 2.5 MILLIGRAM, QD
     Route: 048
     Dates: start: 20180724
  2. KISQALI [Suspect]
     Active Substance: RIBOCICLIB
     Indication: Breast cancer metastatic
     Dosage: 200 MG, QD ADMIN SCHEME 21 DAY INTAKE, 7 DAY PAUSE
     Route: 048
     Dates: start: 20201223
  3. KISQALI [Suspect]
     Active Substance: RIBOCICLIB
     Dosage: 200 MG, QD ADMIN SCHEME 21 DAY INTAKE, 7 DAY PAUSE
     Route: 048
     Dates: start: 20191128, end: 20201124
  4. KISQALI [Suspect]
     Active Substance: RIBOCICLIB
     Dosage: 400 MG, QD SCHEMA 21 DAY INTAKE, THAN 7 DAYS PAUSE
     Route: 048
     Dates: start: 20191015, end: 20191119
  5. KISQALI [Suspect]
     Active Substance: RIBOCICLIB
     Dosage: 600 MG, QD D1-21, 28 ADMIN SCHEME 21 DAYS INTAKE
     Route: 048
     Dates: start: 20180724, end: 20190924

REACTIONS (5)
  - Neutropenia [Recovered/Resolved]
  - White blood cell count decreased [Recovered/Resolved]
  - Sleep disorder [Not Recovered/Not Resolved]
  - Alopecia [Not Recovered/Not Resolved]
  - Fatigue [Unknown]

NARRATIVE: CASE EVENT DATE: 20180807
